FAERS Safety Report 5279080-X (Version None)
Quarter: 2007Q1

REPORT INFORMATION
  Report Type: 
  Country: None (occurrence: None)
  Receive Date: 20070328
  Receipt Date: 20070322
  Transmission Date: 20070707
  Serious: Yes (Other)
  Sender: FDA-Public Use
  Company Number: ES-AVENTIS-200712278GDDC

PATIENT
  Age: 69 Year
  Sex: Male
  Weight: 76.5 kg

DRUGS (3)
  1. LANTUS [Suspect]
     Indication: DIABETES MELLITUS NON-INSULIN-DEPENDENT
     Route: 058
     Dates: start: 20070306, end: 20070308
  2. ARADOIS [Concomitant]
     Indication: HYPERTENSION
     Dosage: DOSE QUANTITY: 2
     Route: 048
     Dates: start: 20050101
  3. AMARYL [Concomitant]
     Indication: DIABETES MELLITUS
     Dosage: DOSE QUANTITY: 2
     Route: 048
     Dates: start: 20060101

REACTIONS (11)
  - EFFUSION [None]
  - ERYTHEMA [None]
  - EYE DISORDER [None]
  - EYE INFECTION [None]
  - EYE INFLAMMATION [None]
  - FORMICATION [None]
  - HYPERGLYCAEMIA [None]
  - PHARMACEUTICAL PRODUCT COMPLAINT [None]
  - VASCULAR RUPTURE [None]
  - VISION BLURRED [None]
  - WRONG TECHNIQUE IN DRUG USAGE PROCESS [None]
